FAERS Safety Report 8372016-4 (Version None)
Quarter: 2012Q2

REPORT INFORMATION
  Report Type: 
  Country: None (occurrence: None)
  Receive Date: 20120518
  Receipt Date: 20120504
  Transmission Date: 20120825
  Serious: Yes (Other)
  Sender: FDA-Public Use
  Company Number: CHPA2012US010541

PATIENT
  Age: 74 Year
  Sex: Female

DRUGS (1)
  1. BENEFIBER ORANGE POWDER [Suspect]
     Indication: BOWEL MOVEMENT IRREGULARITY
     Dosage: 2 TSP, TID
     Route: 048
     Dates: start: 20110101

REACTIONS (9)
  - BACK PAIN [None]
  - FEELING HOT [None]
  - OFF LABEL USE [None]
  - DEHYDRATION [None]
  - CHROMATURIA [None]
  - CHILLS [None]
  - BLOOD URINE PRESENT [None]
  - HYPERHIDROSIS [None]
  - KIDNEY INFECTION [None]
